FAERS Safety Report 21487129 (Version 1)
Quarter: 2022Q4

REPORT INFORMATION
  Report Type: Spontaneous
  Country: US (occurrence: US)
  Receive Date: 20221020
  Receipt Date: 20221020
  Transmission Date: 20230113
  Serious: Yes (Hospitalization, Other)
  Sender: FDA-Public Use
  Company Number: US-FreseniusKabi-FK202214226

PATIENT
  Age: 81 Year
  Sex: Male

DRUGS (1)
  1. HYDROMORPHONE [Suspect]
     Active Substance: HYDROMORPHONE
     Indication: Post laminectomy syndrome
     Dosage: VIA AN INTRATHECAL PAIN PUMP
     Route: 037

REACTIONS (1)
  - Meningitis aseptic [Recovered/Resolved]
